FAERS Safety Report 6923343-6 (Version None)
Quarter: 2010Q3

REPORT INFORMATION
  Report Type: 
  Country: None (occurrence: None)
  Receive Date: 20100813
  Receipt Date: 20100803
  Transmission Date: 20110219
  Serious: Yes (Other)
  Sender: FDA-Public Use
  Company Number: JP-PFIZER INC-2010098249

PATIENT
  Age: 38 Year
  Sex: Male

DRUGS (3)
  1. SOLU-MEDROL [Suspect]
     Indication: GRAFT VERSUS HOST DISEASE
     Dosage: 2 MG/KG, UNK
  2. MYCOPHENOLATE MOFETIL [Suspect]
     Indication: GRAFT VERSUS HOST DISEASE
  3. CYCLOSPORINE [Suspect]
     Indication: GRAFT VERSUS HOST DISEASE

REACTIONS (2)
  - CYTOMEGALOVIRUS TEST POSITIVE [None]
  - HERPES ZOSTER DISSEMINATED [None]
